FAERS Safety Report 8576647-8 (Version None)
Quarter: 2012Q3

REPORT INFORMATION
  Report Type: 
  Country: None (occurrence: None)
  Receive Date: 20120725
  Receipt Date: 20120716
  Transmission Date: 20120928
  Serious: Yes (Other)
  Sender: FDA-Public Use
  Company Number: ACO_31139_2012

PATIENT
  Age: 53 Year
  Sex: Female
  Weight: 61.2 kg

DRUGS (3)
  1. BACLOFEN [Concomitant]
  2. AMPYRA [Suspect]
     Indication: GAIT DISTURBANCE
     Dosage: 10 MG, BID, ORAL
     Route: 048
     Dates: start: 20110101, end: 20120716
  3. AVONEX [Concomitant]

REACTIONS (2)
  - RENAL CANCER [None]
  - MUSCULOSKELETAL CHEST PAIN [None]
